FAERS Safety Report 9378565 (Version 1)
Quarter: 2013Q3

REPORT INFORMATION
  Report Type: Spontaneous
  Country: GR (occurrence: GR)
  Receive Date: 20130702
  Receipt Date: 20130702
  Transmission Date: 20140515
  Serious: Yes (Other)
  Sender: FDA-Public Use
  Company Number: GR-ROCHE-1242340

PATIENT
  Age: 57 Year
  Sex: Female

DRUGS (10)
  1. HERCEPTIN [Suspect]
     Indication: BREAST CANCER METASTATIC
     Route: 065
     Dates: end: 2003
  2. HERCEPTIN [Suspect]
     Route: 065
     Dates: start: 200807, end: 200811
  3. HERCEPTIN [Suspect]
     Route: 065
     Dates: end: 201008
  4. XELODA [Suspect]
     Indication: BREAST CANCER METASTATIC
     Route: 065
     Dates: end: 200312
  5. FEMARA [Concomitant]
     Indication: BREAST CANCER
     Route: 065
  6. TAXOL [Concomitant]
     Indication: BREAST CANCER METASTATIC
  7. NAVELBINE [Concomitant]
     Indication: BONE DISORDER
  8. ZOMETA [Concomitant]
     Indication: BREAST CANCER METASTATIC
  9. XGEVA [Concomitant]
  10. LAPATINIB [Concomitant]
     Indication: DISEASE PROGRESSION

REACTIONS (3)
  - Disease progression [Unknown]
  - Chronic myelomonocytic leukaemia [Unknown]
  - Graft versus host disease [Unknown]
